FAERS Safety Report 6677962-5 (Version None)
Quarter: 2010Q2

REPORT INFORMATION
  Report Type: 
  Country: None (occurrence: None)
  Receive Date: 20100412
  Receipt Date: 20100401
  Transmission Date: 20101027
  Serious: Yes (Hospitalization)
  Sender: FDA-Public Use
  Company Number: DE-WATSON-2010-04609

PATIENT

DRUGS (2)
  1. RAMIPRIL [Suspect]
     Indication: DRUG USE FOR UNKNOWN INDICATION
     Dosage: UNK
     Route: 065
  2. REMERGIL [Suspect]
     Indication: DEPRESSION
     Dosage: 15 MG, ONCE
     Route: 048
     Dates: start: 20100204

REACTIONS (2)
  - ANAPHYLACTIC SHOCK [None]
  - RESPIRATORY DISORDER [None]
